FAERS Safety Report 16887018 (Version 2)
Quarter: 2019Q4

REPORT INFORMATION
  Report Type: Other
  Country: CA (occurrence: CA)
  Receive Date: 20191004
  Receipt Date: 20191216
  Transmission Date: 20200122
  Serious: Yes (Hospitalization, Other)
  Sender: FDA-Public Use
  Company Number: CA-INTERCEPT-PM2019001676

PATIENT
  Age: 60 Year
  Sex: Female

DRUGS (3)
  1. OCALIVA [Suspect]
     Active Substance: OBETICHOLIC ACID
     Indication: PRIMARY BILIARY CHOLANGITIS
     Dosage: 5 MG, QD
     Route: 048
     Dates: start: 20180729, end: 201909
  2. URSO [Concomitant]
     Active Substance: URSODIOL
     Dosage: 500 MG, BID
     Route: 048
  3. OCALIVA [Suspect]
     Active Substance: OBETICHOLIC ACID
     Dosage: 5 MG, QD
     Route: 048
     Dates: start: 2019

REACTIONS (7)
  - Rectal haemorrhage [Recovered/Resolved]
  - Polyp [Recovered/Resolved]
  - Haemorrhoids [Recovered/Resolved]
  - Iron deficiency [Recovered/Resolved]
  - Syncope [Recovered/Resolved]
  - Haemorrhoidal haemorrhage [Recovered/Resolved]
  - Constipation [Unknown]

NARRATIVE: CASE EVENT DATE: 20190923
